FAERS Safety Report 6698193-9 (Version None)
Quarter: 2010Q2

REPORT INFORMATION
  Report Type: 
  Country: None (occurrence: None)
  Receive Date: 20100426
  Receipt Date: 20100426
  Transmission Date: 20101027
  Serious: Yes (Other)
  Sender: FDA-Public Use
  Company Number: None

PATIENT
  Age: 32 Year
  Sex: Male

DRUGS (5)
  1. WELLBUTRIN XL [Suspect]
     Indication: ATTENTION DEFICIT/HYPERACTIVITY DISORDER
     Dosage: QD
     Dates: start: 20091229
  2. WELLBUTRIN XL [Suspect]
     Indication: BIPOLAR DISORDER
     Dosage: QD
     Dates: start: 20091229
  3. WELLBUTRIN XL [Suspect]
     Indication: OBSESSIVE-COMPULSIVE DISORDER
     Dosage: QD
     Dates: start: 20091229
  4. DEPAKOTE [Concomitant]
  5. FOCALIN XR [Concomitant]

REACTIONS (4)
  - CONDITION AGGRAVATED [None]
  - MAJOR DEPRESSION [None]
  - PRODUCT SUBSTITUTION ISSUE [None]
  - SUICIDAL IDEATION [None]
